FAERS Safety Report 8347395-4 (Version None)
Quarter: 2012Q2

REPORT INFORMATION
  Report Type: 
  Country: None (occurrence: None)
  Receive Date: 20120509
  Receipt Date: 20120426
  Transmission Date: 20120825
  Serious: Yes (Other)
  Sender: FDA-Public Use
  Company Number: FR-ROCHE-1066458

PATIENT
  Sex: Female
  Weight: 70 kg

DRUGS (7)
  1. ACETAMINOPHEN [Concomitant]
     Dates: start: 20111025
  2. COPEGUS [Suspect]
     Indication: HEPATITIS C
     Route: 048
     Dates: start: 20111025, end: 20120322
  3. PEGASYS [Suspect]
     Indication: HEPATITIS C
     Dates: start: 20111025, end: 20120321
  4. CALCIUM CARBONATE [Concomitant]
     Dates: start: 20100101
  5. NEORECORMON [Concomitant]
     Dates: start: 20111219
  6. BLINDED ALISPORIVIR [Suspect]
     Indication: HEPATITIS C
     Route: 048
     Dates: start: 20111025, end: 20120322
  7. TENORMIN [Concomitant]
     Dates: start: 20111219

REACTIONS (1)
  - CYTOTOXIC CARDIOMYOPATHY [None]
